FAERS Safety Report 14739675 (Version 5)
Quarter: 2018Q2

REPORT INFORMATION
  Report Type: Spontaneous
  Country: US (occurrence: US)
  Receive Date: 20180410
  Receipt Date: 20180630
  Transmission Date: 20180711
  Serious: No
  Sender: FDA-Public Use
  Company Number: PHEH2018US013579

PATIENT
  Sex: Male

DRUGS (2)
  1. LENVATINIB [Suspect]
     Active Substance: LENVATINIB
     Indication: RENAL CANCER
     Dosage: 14 MG, QD
     Route: 048
     Dates: start: 20180315
  2. AFINITOR [Suspect]
     Active Substance: EVEROLIMUS
     Indication: RENAL CANCER
     Dosage: 5 MG, QD
     Route: 048
     Dates: start: 20180314

REACTIONS (9)
  - Fatigue [Recovering/Resolving]
  - Haemoglobin decreased [Recovered/Resolved]
  - Lymphadenopathy [Recovered/Resolved]
  - Red blood cell count decreased [Recovered/Resolved]
  - Anorectal discomfort [Recovered/Resolved]
  - White blood cell count decreased [Unknown]
  - Arthralgia [Unknown]
  - Abdominal distension [Recovering/Resolving]
  - Blood pressure increased [Recovering/Resolving]
